FAERS Safety Report 23046469 (Version 1)
Quarter: 2023Q4

REPORT INFORMATION
  Report Type: Spontaneous
  Country: CA (occurrence: CA)
  Receive Date: 20231009
  Receipt Date: 20231009
  Transmission Date: 20240110
  Serious: Yes (Other)
  Sender: FDA-Public Use
  Company Number: CA-BAYER-2023A139166

PATIENT
  Age: 71 Year
  Sex: Female
  Weight: 81.633 kg

DRUGS (2)
  1. GADOBUTROL [Suspect]
     Active Substance: GADOBUTROL
     Indication: Magnetic resonance imaging
     Dosage: 9 ML, ONCE
     Route: 042
  2. BUTYLSCOPOLAMINE BROMIDE [Concomitant]
     Active Substance: BUTYLSCOPOLAMINE BROMIDE

REACTIONS (6)
  - Throat tightness [Unknown]
  - Pharyngeal paraesthesia [Unknown]
  - Musculoskeletal discomfort [Unknown]
  - Paraesthesia [Unknown]
  - Hypoaesthesia [Unknown]
  - Throat irritation [Unknown]
